FAERS Safety Report 16169363 (Version 2)
Quarter: 2019Q2

REPORT INFORMATION
  Report Type: Spontaneous
  Country: KR (occurrence: KR)
  Receive Date: 20190408
  Receipt Date: 20190424
  Transmission Date: 20190711
  Serious: Yes (Hospitalization)
  Sender: FDA-Public Use
  Company Number: KR-009507513-1904KOR001410

PATIENT
  Sex: Male

DRUGS (49)
  1. POTASSIUM CHLORIDE. [Concomitant]
     Active Substance: POTASSIUM CHLORIDE
     Dosage: QUANTITY: 2, DAYS:7
     Dates: start: 20190304, end: 20190327
  2. ATIVAN [Concomitant]
     Active Substance: LORAZEPAM
     Dosage: QUANTITY: 1, DAYS: 23
     Dates: start: 20190304, end: 20190327
  3. MIDAZOLAM BUKWANG [Concomitant]
     Dosage: QUANTITY: 1, DAYS: 1
     Dates: start: 20190304, end: 20190327
  4. PHYTONADIONE. [Concomitant]
     Active Substance: PHYTONADIONE
     Dosage: QUANTITY: 2, DAYS: 1
     Dates: start: 20190304, end: 20190327
  5. SODIUM CHLORIDE. [Concomitant]
     Active Substance: SODIUM CHLORIDE
     Dosage: QUANTITY: 2, DAYS: 5
     Dates: start: 20190304, end: 20190327
  6. SODIUM CHLORIDE. [Concomitant]
     Active Substance: SODIUM CHLORIDE
     Dosage: QUANTITY: 4, DAYS: 12
     Dates: start: 20190304, end: 20190327
  7. SMOFKABIVEN PERIPHERAL [Concomitant]
     Dosage: QUANTITY: 1, DAYS: 11
     Dates: start: 20190304, end: 20190327
  8. MG TNA [Concomitant]
     Dosage: QUANTITY: 1, DAYS: 2, 1540 ML
     Dates: start: 20190304, end: 20190327
  9. DIFLUCAN [Concomitant]
     Active Substance: FLUCONAZOLE
     Dosage: QUANTITY: 10, DAYS: 6, 0.35G/35ML
     Dates: start: 20190304, end: 20190327
  10. ABSTRAL [Concomitant]
     Active Substance: FENTANYL CITRATE
     Dosage: QUANTITY: 4, DAYS: 3
     Dates: start: 20190304, end: 20190327
  11. CALDOLOR [Concomitant]
     Active Substance: IBUPROFEN
     Dosage: QUANTITY: 1, DAYS: 1
     Dates: start: 20190304, end: 20190327
  12. SODIUM CHLORIDE. [Concomitant]
     Active Substance: SODIUM CHLORIDE
     Dosage: QUANTITY: 1, DAYS: 23, 20 ML
     Dates: start: 20190304, end: 20190327
  13. PACETA [Concomitant]
     Dosage: QUANTITY: 2, DAYS: 2
     Dates: start: 20190304, end: 20190327
  14. TRANEXAMIC ACID. [Concomitant]
     Active Substance: TRANEXAMIC ACID
     Dosage: QUANTITY: 2, DAYS: 2
     Dates: start: 20190304, end: 20190327
  15. YUHAN DEXAMETHASONE (DEXAMETHASONE) [Concomitant]
     Dosage: QUANTITY: 14, DAYS:12
     Dates: start: 20190304, end: 20190327
  16. LASIX [Concomitant]
     Active Substance: FUROSEMIDE
     Dosage: QUANTITY: 0.5, DAYS: 2
     Dates: start: 20190304, end: 20190327
  17. LASIX [Concomitant]
     Active Substance: FUROSEMIDE
     Dosage: QUANTITY: 1, DAYS: 2
     Dates: start: 20190304, end: 20190327
  18. PACETA [Concomitant]
     Dosage: QUANTITY: 1, DAYS: 19
     Dates: start: 20190304, end: 20190327
  19. PHOSTEN [Concomitant]
     Dosage: QUANTITY: 1, DAYS: 5, 20 ML
     Dates: start: 20190304, end: 20190327
  20. TABAXIN [Concomitant]
     Active Substance: PIPERACILLIN SODIUM\TAZOBACTAM SODIUM
     Dosage: QUANTITY: 4, DAYS: 12
     Dates: start: 20190304, end: 20190327
  21. TAPOCIN [Concomitant]
     Dosage: QUANTITY: 1, DAYS: 13
     Dates: start: 20190304, end: 20190327
  22. TAMIPOOL [Concomitant]
     Active Substance: VITAMINS
     Dosage: QUANTITY: 1, DAYS: 11
     Dates: start: 20190304, end: 20190327
  23. DIFLUCAN [Concomitant]
     Active Substance: FLUCONAZOLE
     Dosage: QUANTITY: 20, DAYS: 8, 0.35G/35ML
     Dates: start: 20190304, end: 20190327
  24. SODIUM CHLORIDE. [Concomitant]
     Active Substance: SODIUM CHLORIDE
     Dosage: QUANTITY: 2, DAYS: 1
     Dates: start: 20190304, end: 20190327
  25. PANORIN [Concomitant]
     Dosage: QUANTITY: 2, DAYS: 1
     Dates: start: 20190304, end: 20190327
  26. TRANEXAMIC ACID. [Concomitant]
     Active Substance: TRANEXAMIC ACID
     Dosage: QUANTITY: 1, DAYS: 2
     Dates: start: 20190304, end: 20190327
  27. PHYTONADIONE. [Concomitant]
     Active Substance: PHYTONADIONE
     Dosage: QUANTITY: 1, DAYS: 7
     Dates: start: 20190304, end: 20190327
  28. SODIUM CHLORIDE. [Concomitant]
     Active Substance: SODIUM CHLORIDE
     Dosage: QUANTITY: 1, DAYS: 16
     Dates: start: 20190304, end: 20190327
  29. SODIUM CHLORIDE. [Concomitant]
     Active Substance: SODIUM CHLORIDE
     Dosage: QUANTITY: 3, DAYS: 8
     Dates: start: 20190304, end: 20190327
  30. OXYNORM [Concomitant]
     Active Substance: OXYCODONE HYDROCHLORIDE
     Dosage: QUANTITY: 1, DAYS: 1
     Dates: start: 20190304, end: 20190327
  31. TARGOCID [Concomitant]
     Active Substance: TEICOPLANIN
     Dosage: QUANTITY: 1, DAYS: 5
     Dates: start: 20190304, end: 20190327
  32. SMECTA [Concomitant]
     Active Substance: MONTMORILLONITE
     Dosage: QUANTITY: 1, DAYS:1, 20 ML
     Dates: start: 20190304, end: 20190327
  33. MACPERAN [Concomitant]
     Active Substance: METOCLOPRAMIDE HYDROCHLORIDE
     Dosage: QUANTITY: 1, DAYS: 6
     Dates: start: 20190304, end: 20190327
  34. MACPERAN [Concomitant]
     Active Substance: METOCLOPRAMIDE HYDROCHLORIDE
     Dosage: QUANTITY: 2, DAYS: 2
     Dates: start: 20190304, end: 20190327
  35. KEYTRUDA [Suspect]
     Active Substance: PEMBROLIZUMAB
     Dosage: QUANTITY: 2, DAYS: 1
     Dates: start: 201903
  36. HEPARIN SODIUM. [Concomitant]
     Active Substance: HEPARIN SODIUM
     Dosage: QUANTITY: 4, DAYS: 1
     Dates: start: 20190304, end: 20190327
  37. LIDOCAINE HCL HUONS [Concomitant]
     Dosage: QUANTITY: 1, DAYS: 1
     Dates: start: 20190304, end: 20190327
  38. CRAVIT [Concomitant]
     Active Substance: LEVOFLOXACIN
     Dosage: QUANTITY: 1, DAYS: 9
     Dates: start: 20190304, end: 20190327
  39. MAGNESIN (MAGNESIUM SULFATE) [Concomitant]
     Dosage: QUANTITY: 1, DAYS: 12
     Dates: start: 20190304, end: 20190327
  40. SODIUM CHLORIDE. [Concomitant]
     Active Substance: SODIUM CHLORIDE
     Dosage: QUANTITY: 1, DAYS: 1, 20 ML
     Dates: start: 20190304, end: 20190327
  41. TAPOCIN [Concomitant]
     Dosage: QUANTITY: 2, DAYS: 1
     Dates: start: 20190304, end: 20190327
  42. SODIUM CHLORIDE. [Concomitant]
     Active Substance: SODIUM CHLORIDE
     Dosage: QUANTITY: 1, DAYS: 51
     Dates: start: 20190304, end: 20190327
  43. SODIUM CHLORIDE. [Concomitant]
     Active Substance: SODIUM CHLORIDE
     Dosage: QUANTITY: 1, DAYS: 4
     Dates: start: 20190304, end: 20190327
  44. ABSTRAL [Concomitant]
     Active Substance: FENTANYL CITRATE
     Dosage: QUANTITY: 10, DAYS: 1
     Dates: start: 20190304, end: 20190327
  45. POTASSIUM CHLORIDE. [Concomitant]
     Active Substance: POTASSIUM CHLORIDE
     Dosage: QUANTITY: 1, DAYS: 11
     Dates: start: 20190304, end: 20190327
  46. MACPERAN [Concomitant]
     Active Substance: METOCLOPRAMIDE HYDROCHLORIDE
     Dosage: QUANTITY: 3, DAYS: 14
     Dates: start: 20190304, end: 20190327
  47. SODIUM CHLORIDE. [Concomitant]
     Active Substance: SODIUM CHLORIDE
     Dosage: QUANTITY: 1, DAYS: 2
     Dates: start: 20190304, end: 20190327
  48. SODIUM CHLORIDE. [Concomitant]
     Active Substance: SODIUM CHLORIDE
     Dosage: QUANTITY: 1, DAYS: 9
     Dates: start: 20190304, end: 20190327
  49. WINUF PERI [Concomitant]
     Dosage: QUANTITY: 1, DAYS: 2, 1085 ML
     Dates: start: 20190304, end: 20190327

REACTIONS (1)
  - Adverse event [Unknown]

NARRATIVE: CASE EVENT DATE: 201903
